FAERS Safety Report 9868112 (Version 3)
Quarter: 2014Q1

REPORT INFORMATION
  Report Type: Report from Study
  Country: LT (occurrence: LT)
  Receive Date: 20140204
  Receipt Date: 20140220
  Transmission Date: 20141002
  Serious: Yes (Other)
  Sender: FDA-Public Use
  Company Number: LT-GLAXOSMITHKLINE-B0965678A

PATIENT
  Sex: Male

DRUGS (6)
  1. IMIGRAN [Suspect]
     Indication: MIGRAINE
     Dosage: 100MG PER DAY
     Route: 065
  2. ANALGIN [Concomitant]
  3. OMEPRAZOL [Concomitant]
  4. MAGNESIUM [Concomitant]
  5. NOSPA [Concomitant]
  6. HOMEOPATHY [Concomitant]

REACTIONS (5)
  - Pancreatitis [Not Recovered/Not Resolved]
  - Gastritis [Not Recovered/Not Resolved]
  - Abdominal pain [Unknown]
  - Abdominal pain upper [Unknown]
  - Chest pain [Unknown]
